FAERS Safety Report 14006566 (Version 2)
Quarter: 2017Q4

REPORT INFORMATION
  Report Type: Report from Study
  Country: JP (occurrence: JP)
  Receive Date: 20170925
  Receipt Date: 20171214
  Transmission Date: 20180321
  Serious: Yes (Death, Life-Threatening, Other)
  Sender: FDA-Public Use
  Company Number: JP-BRISTOL-MYERS SQUIBB COMPANY-BMS-2017-085546

PATIENT
  Age: 73 Year
  Sex: Male

DRUGS (2)
  1. NIVOLUMAB [Suspect]
     Active Substance: NIVOLUMAB
     Indication: HODGKIN^S DISEASE
     Dosage: 3 MG/KG, UNK
     Route: 041
     Dates: start: 20170209, end: 20170223
  2. VEPESID [Suspect]
     Active Substance: ETOPOSIDE
     Indication: HODGKIN^S DISEASE
     Dosage: 100 MG, QD
     Route: 042
     Dates: start: 20170313

REACTIONS (6)
  - Left ventricular failure [Not Recovered/Not Resolved]
  - Hyperglycaemia [Recovering/Resolving]
  - Malignant neoplasm progression [Fatal]
  - Insomnia [Unknown]
  - Delirium [Recovered/Resolved with Sequelae]
  - Dehydration [Not Recovered/Not Resolved]

NARRATIVE: CASE EVENT DATE: 20170314
